FAERS Safety Report 7502668-X (Version None)
Quarter: 2011Q2

REPORT INFORMATION
  Report Type: 
  Country: None (occurrence: None)
  Receive Date: 20110525
  Receipt Date: 20110516
  Transmission Date: 20111010
  Serious: Yes (Hospitalization)
  Sender: FDA-Public Use
  Company Number: PHFR2011GB02724

PATIENT
  Sex: Male

DRUGS (6)
  1. CLOZARIL [Suspect]
     Indication: SCHIZOPHRENIA, PARANOID TYPE
     Dosage: 350 MG, UNK
     Route: 048
     Dates: start: 20061211
  2. CLOZARIL [Suspect]
     Dosage: 1400 MG
     Route: 048
     Dates: start: 20110422
  3. CLOZARIL [Suspect]
     Dosage: 350 MG, QD
     Route: 048
     Dates: start: 20110426
  4. AMISULPRIDE [Suspect]
     Dosage: 100 MG, UNK
     Route: 048
  5. ANXIOLYTICS [Concomitant]
     Dosage: UNK
  6. CLOZARIL [Suspect]
     Dosage: 350 MG, UNK
     Route: 048
     Dates: start: 20110427

REACTIONS (6)
  - PARANOIA [None]
  - SCHIZOPHRENIA [None]
  - PANIC ATTACK [None]
  - SINUS TACHYCARDIA [None]
  - MEDICATION ERROR [None]
  - ANXIETY [None]
